FAERS Safety Report 7026941-7 (Version None)
Quarter: 2010Q4

REPORT INFORMATION
  Report Type: 
  Country: None (occurrence: None)
  Receive Date: 20101004
  Receipt Date: 20100923
  Transmission Date: 20110411
  Serious: Yes (Death)
  Sender: FDA-Public Use
  Company Number: B0677350A

PATIENT
  Age: 69 Year
  Sex: Female

DRUGS (9)
  1. OMACOR [Suspect]
     Indication: PRODUCT USED FOR UNKNOWN INDICATION
     Dosage: 2000MG PER DAY
     Route: 048
     Dates: start: 20100101, end: 20100714
  2. PRITORPLUS [Suspect]
     Indication: HYPERTENSION
     Route: 048
     Dates: start: 20100301, end: 20100714
  3. SEGURIL [Suspect]
     Indication: PRODUCT USED FOR UNKNOWN INDICATION
     Dosage: 20MG PER DAY
     Route: 048
     Dates: start: 20100101, end: 20100711
  4. ZYLORIC [Suspect]
     Indication: HYPERURICAEMIA
     Dosage: 300MG PER DAY
     Route: 048
     Dates: start: 20100301, end: 20100714
  5. OMEPRAZOLE [Suspect]
     Indication: GASTRIC ULCER
     Dosage: 40MG PER DAY
     Route: 048
     Dates: start: 20091101, end: 20100714
  6. ANALGILASA [Suspect]
     Indication: OSTEOARTHRITIS
     Route: 048
     Dates: start: 20091101, end: 20100714
  7. ACETAMINOPHEN [Suspect]
     Indication: PRODUCT USED FOR UNKNOWN INDICATION
     Dosage: 15G PER DAY
     Route: 048
     Dates: start: 20100101, end: 20100714
  8. VOLTAREN [Suspect]
     Indication: PRODUCT USED FOR UNKNOWN INDICATION
     Route: 048
     Dates: start: 20090101, end: 20100101
  9. NOLOTIL [Suspect]
     Indication: PRODUCT USED FOR UNKNOWN INDICATION
     Dates: start: 20091001, end: 20100101

REACTIONS (19)
  - ANGINA PECTORIS [None]
  - APLASTIC ANAEMIA [None]
  - ASTHENIA [None]
  - BRONCHOPULMONARY ASPERGILLOSIS [None]
  - BRONCHOSPASM [None]
  - CONTUSION [None]
  - DRUG RESISTANCE [None]
  - ELECTROCARDIOGRAM ABNORMAL [None]
  - FLUID RETENTION [None]
  - HYPOTENSION [None]
  - MULTI-ORGAN FAILURE [None]
  - NO THERAPEUTIC RESPONSE [None]
  - PANCYTOPENIA [None]
  - PETECHIAE [None]
  - PLEURAL EFFUSION [None]
  - PYREXIA [None]
  - RESPIRATORY FAILURE [None]
  - TREATMENT FAILURE [None]
  - TROPONIN INCREASED [None]
